FAERS Safety Report 19063238 (Version 1)
Quarter: 2021Q1

REPORT INFORMATION
  Report Type: Spontaneous
  Country: CN (occurrence: CN)
  Receive Date: 20210326
  Receipt Date: 20210326
  Transmission Date: 20210420
  Serious: Yes (Hospitalization)
  Sender: FDA-Public Use
  Company Number: CN-SPECGX-T202100945

PATIENT
  Age: 75 Year
  Sex: Male
  Weight: 48 kg

DRUGS (3)
  1. OXYCODONE/ACETAMINOPHEN [Suspect]
     Active Substance: ACETAMINOPHEN\OXYCODONE HYDROCHLORIDE
     Indication: PAIN
  2. OXYCODONE/ACETAMINOPHEN [Suspect]
     Active Substance: ACETAMINOPHEN\OXYCODONE HYDROCHLORIDE
     Indication: DISCOMFORT
     Dosage: 1 DOSAGE FORM, BID
     Route: 048
     Dates: start: 20210121, end: 20210201
  3. OXYCODONE/ACETAMINOPHEN [Suspect]
     Active Substance: ACETAMINOPHEN\OXYCODONE HYDROCHLORIDE
     Indication: SYMPTOMATIC TREATMENT

REACTIONS (3)
  - Pleural effusion [Recovering/Resolving]
  - Dyspnoea [Recovering/Resolving]
  - Generalised oedema [Recovering/Resolving]

NARRATIVE: CASE EVENT DATE: 20210122
